FAERS Safety Report 6168920-8 (Version None)
Quarter: 2009Q2

REPORT INFORMATION
  Report Type: 
  Country: None (occurrence: None)
  Receive Date: 20090427
  Receipt Date: 20090417
  Transmission Date: 20091009
  Serious: Yes (Other)
  Sender: FDA-Public Use
  Company Number: PHEH2009US03903

PATIENT
  Sex: Male

DRUGS (1)
  1. EXJADE [Suspect]
     Indication: IRON OVERLOAD
     Dosage: 500 MG (4 TABS QD)
     Dates: start: 20090403

REACTIONS (4)
  - BACK PAIN [None]
  - DIARRHOEA [None]
  - DIZZINESS [None]
  - PRESYNCOPE [None]
